FAERS Safety Report 19785158 (Version 2)
Quarter: 2021Q3

REPORT INFORMATION
  Report Type: Report from Study
  Country: CA (occurrence: CA)
  Receive Date: 20210903
  Receipt Date: 20210922
  Transmission Date: 20211014
  Serious: Yes (Hospitalization)
  Sender: FDA-Public Use
  Company Number: CA-JNJFOC-20210857521

PATIENT
  Age: 63 Year
  Sex: Female
  Weight: 82.5 kg

DRUGS (1)
  1. REMICADE [Suspect]
     Active Substance: INFLIXIMAB
     Indication: SARCOIDOSIS
     Route: 042
     Dates: start: 20150914

REACTIONS (1)
  - Breast conserving surgery [Unknown]

NARRATIVE: CASE EVENT DATE: 20210819
